FAERS Safety Report 6643953-3 (Version None)
Quarter: 2010Q1

REPORT INFORMATION
  Report Type: 
  Country: None (occurrence: None)
  Receive Date: 20100322
  Receipt Date: 20100315
  Transmission Date: 20100710
  Serious: Yes (Hospitalization)
  Sender: FDA-Public Use
  Company Number: US-BRISTOL-MYERS SQUIBB COMPANY-15019110

PATIENT
  Age: 89 Year
  Sex: Female
  Weight: 67 kg

DRUGS (1)
  1. COUMADIN [Suspect]
     Indication: PULMONARY EMBOLISM

REACTIONS (8)
  - DIARRHOEA [None]
  - HAEMATEMESIS [None]
  - HAEMORRHAGE [None]
  - INTERNATIONAL NORMALISED RATIO INCREASED [None]
  - NAUSEA [None]
  - PYREXIA [None]
  - SCRATCH [None]
  - VOMITING [None]
